FAERS Safety Report 6252339-5 (Version None)
Quarter: 2009Q2

REPORT INFORMATION
  Report Type: 
  Country: None (occurrence: None)
  Receive Date: 20090629
  Receipt Date: 20090629
  Transmission Date: 20091009
  Serious: No
  Sender: FDA-Public Use
  Company Number: None

PATIENT
  Age: 51 Year
  Sex: Male

DRUGS (1)
  1. OXALIPLATIN [Suspect]
     Dosage: 85MG/M2 5 CYCLES IV
     Route: 042
     Dates: start: 20090501

REACTIONS (1)
  - NEUROPATHY PERIPHERAL [None]
